FAERS Safety Report 12540152 (Version 1)
Quarter: 2016Q3

REPORT INFORMATION
  Report Type: Spontaneous
  Country: US (occurrence: US)
  Receive Date: 20160708
  Receipt Date: 20160708
  Transmission Date: 20161109
  Serious: Yes (Other)
  Sender: FDA-Public Use
  Company Number: US-TEVA-674152ACC

PATIENT
  Age: 18 Year
  Sex: Female
  Weight: 84.44 kg

DRUGS (2)
  1. VITAMINS [Concomitant]
     Active Substance: VITAMINS
  2. PARAGARD T 380A [Suspect]
     Active Substance: COPPER
     Indication: CONTRACEPTION
     Dates: start: 20160406, end: 20160630

REACTIONS (2)
  - Device dislocation [Recovered/Resolved]
  - Uterine pain [Unknown]

NARRATIVE: CASE EVENT DATE: 20160423
